FAERS Safety Report 7945766-9 (Version None)
Quarter: 2011Q4

REPORT INFORMATION
  Report Type: 
  Country: None (occurrence: None)
  Receive Date: 20111129
  Receipt Date: 20110525
  Transmission Date: 20120403
  Serious: No
  Sender: FDA-Public Use
  Company Number: US-GLAXOSMITHKLINE-A0929917A

PATIENT

DRUGS (2)
  1. LANOXIN [Suspect]
     Indication: CARDIAC FAILURE CONGESTIVE
     Route: 065
  2. LANOXIN [Suspect]
     Route: 065

REACTIONS (4)
  - MALAISE [None]
  - HYPERSENSITIVITY [None]
  - DRUG EFFECT DECREASED [None]
  - SWELLING FACE [None]
